FAERS Safety Report 24547007 (Version 2)
Quarter: 2024Q4

REPORT INFORMATION
  Report Type: Report from Study
  Country: US (occurrence: US)
  Receive Date: 20241025
  Receipt Date: 20241029
  Transmission Date: 20250115
  Serious: Yes (Other)
  Sender: ABBVIE
  Company Number: US-ABBVIE-5944192

PATIENT
  Sex: Male
  Weight: 54 kg

DRUGS (1)
  1. HUMIRA [Suspect]
     Active Substance: ADALIMUMAB
     Indication: Rheumatoid arthritis
     Dosage: CITRATE FREE?FORM STRENGTH 40MG
     Route: 058
     Dates: start: 202303, end: 202409

REACTIONS (5)
  - Loss of consciousness [Recovered/Resolved]
  - JC virus infection [Not Recovered/Not Resolved]
  - Seizure [Recovered/Resolved]
  - Weight decreased [Not Recovered/Not Resolved]
  - Gait disturbance [Unknown]

NARRATIVE: CASE EVENT DATE: 20230101
